FAERS Safety Report 23148728 (Version 2)
Quarter: 2023Q4

REPORT INFORMATION
  Report Type: Spontaneous
  Country: GB (occurrence: GB)
  Receive Date: 20231106
  Receipt Date: 20231106
  Transmission Date: 20240110
  Serious: Yes (Hospitalization)
  Sender: FDA-Public Use
  Company Number: GB-MYLANLABS-2023M1086583

PATIENT
  Age: 23 Year
  Sex: Female

DRUGS (2)
  1. CLOZARIL [Suspect]
     Active Substance: CLOZAPINE
     Indication: Mania
     Dosage: UNK
     Route: 048
     Dates: start: 20230922
  2. CLOZARIL [Suspect]
     Active Substance: CLOZAPINE
     Indication: Schizophrenia

REACTIONS (3)
  - Acute kidney injury [Unknown]
  - Hypophagia [Unknown]
  - Off label use [Unknown]

NARRATIVE: CASE EVENT DATE: 20230922
